FAERS Safety Report 6248979-X (Version None)
Quarter: 2009Q2

REPORT INFORMATION
  Report Type: 
  Country: None (occurrence: None)
  Receive Date: 20090625
  Receipt Date: 20090616
  Transmission Date: 20091009
  Serious: Yes (Hospitalization)
  Sender: FDA-Public Use
  Company Number: GP-09-06-0009

PATIENT
  Age: 50 Year
  Sex: Female

DRUGS (11)
  1. LAMOTRIGINE [Suspect]
     Dosage: 25 MG DAILY
  2. LAMOTRIGINE [Suspect]
     Indication: BIPOLAR DISORDER
     Dosage: 25 MG DAILY
  3. LEVOTHYROXINE SODIUM [Concomitant]
  4. LITHIUM [Concomitant]
  5. DILTIAZEM [Concomitant]
  6. CLONAZEPAM [Concomitant]
  7. ZOLPIDEM [Concomitant]
  8. RISPERIDONE [Concomitant]
  9. OXYCODONE [Concomitant]
  10. DIPHENHYDRAMINE HCL [Concomitant]
  11. TYLENOL (CAPLET) [Concomitant]

REACTIONS (6)
  - DYSPNOEA [None]
  - MENINGITIS ASEPTIC [None]
  - MYALGIA [None]
  - PHOTOPHOBIA [None]
  - PYREXIA [None]
  - TACHYCARDIA [None]
